FAERS Safety Report 13365397 (Version 3)
Quarter: 2017Q2

REPORT INFORMATION
  Report Type: Report from Study
  Country: US (occurrence: US)
  Receive Date: 20170323
  Receipt Date: 20170413
  Transmission Date: 20170830
  Serious: Yes (Other)
  Sender: FDA-Public Use
  Company Number: US-009507513-1703USA008288

PATIENT
  Sex: Female

DRUGS (1)
  1. KEYTRUDA [Suspect]
     Active Substance: PEMBROLIZUMAB
     Indication: MALIGNANT MELANOMA
     Dosage: UNK
     Dates: start: 20111220, end: 20150804

REACTIONS (4)
  - Malignant neoplasm progression [Recovered/Resolved]
  - Rash [Unknown]
  - Arthralgia [Recovering/Resolving]
  - Hypothyroidism [Recovered/Resolved]
